FAERS Safety Report 9251762 (Version 2)
Quarter: 2013Q2

REPORT INFORMATION
  Report Type: Spontaneous
  Country: VE (occurrence: VE)
  Receive Date: 20130424
  Receipt Date: 20130503
  Transmission Date: 20140414
  Serious: Yes (Other)
  Sender: FDA-Public Use
  Company Number: VE-PFIZER INC-2013126940

PATIENT
  Age: 70 Year
  Sex: Female

DRUGS (1)
  1. CADUET [Suspect]
     Indication: HYPERTENSION
     Dosage: AMLODIPINE BESILATE 5 MG/ATORVASTATIN CALCIUM 20 MG, ONCE DAILY
     Route: 048
     Dates: start: 2010

REACTIONS (2)
  - Fall [Recovered/Resolved]
  - Lower limb fracture [Recovered/Resolved with Sequelae]
